FAERS Safety Report 13608280 (Version 1)
Quarter: 2017Q2

REPORT INFORMATION
  Report Type: Spontaneous
  Country: GB (occurrence: GB)
  Receive Date: 20170602
  Receipt Date: 20170602
  Transmission Date: 20170830
  Serious: Yes (Hospitalization)
  Sender: FDA-Public Use
  Company Number: GB-PFIZER INC-2017235497

PATIENT
  Age: 36 Year
  Sex: Female

DRUGS (6)
  1. OMEPRAZOLE. [Concomitant]
     Active Substance: OMEPRAZOLE
  2. SERETIDE [Concomitant]
     Active Substance: FLUTICASONE PROPIONATE\SALMETEROL XINAFOATE
  3. SALBUTAMOL [Concomitant]
     Active Substance: ALBUTEROL
  4. FUSIDIC ACID [Concomitant]
     Active Substance: FUSIDIC ACID
  5. TRANEXAMIC ACID. [Suspect]
     Active Substance: TRANEXAMIC ACID
     Indication: OVARIAN CYST
     Dosage: 1 G, 3X/DAY
     Route: 048
     Dates: start: 20170510, end: 20170515
  6. NORETHISTERONE [Suspect]
     Active Substance: NORETHINDRONE
     Indication: OVARIAN CYST
     Dosage: 5 MG, 2X/DAY
     Route: 048
     Dates: start: 20170510, end: 20170515

REACTIONS (9)
  - Pyrexia [Unknown]
  - Periorbital oedema [Unknown]
  - Rash maculo-papular [Recovering/Resolving]
  - Hypotension [Unknown]
  - Wound secretion [Unknown]
  - Diarrhoea [Unknown]
  - Malaise [Unknown]
  - Nausea [Unknown]
  - Pruritus [Unknown]

NARRATIVE: CASE EVENT DATE: 20170510
